FAERS Safety Report 12757882 (Version 2)
Quarter: 2016Q4

REPORT INFORMATION
  Report Type: Spontaneous
  Country: US (occurrence: US)
  Receive Date: 20160919
  Receipt Date: 20161007
  Transmission Date: 20170207
  Serious: No
  Sender: FDA-Public Use
  Company Number: US-PFIZER INC-2016417219

PATIENT
  Age: 62 Year
  Sex: Female
  Weight: 58 kg

DRUGS (9)
  1. ENALAPRIL MALEATE. [Concomitant]
     Active Substance: ENALAPRIL MALEATE
     Dosage: 5 MG, DAILY
     Route: 048
     Dates: start: 20150430
  2. LORTAB [Concomitant]
     Active Substance: ACETAMINOPHEN\HYDROCODONE BITARTRATE
     Dosage: UNK, 2X/DAY (HYDROCODONE BITARTRATE:5 MG, PARACETAMOL: 325 MG)
     Route: 048
     Dates: start: 20150630
  3. PRISTIQ EXTENDED-RELEASE [Suspect]
     Active Substance: DESVENLAFAXINE SUCCINATE
     Indication: DEPRESSION
  4. XANAX [Concomitant]
     Active Substance: ALPRAZOLAM
     Indication: PANIC ATTACK
     Dosage: 0.5 MG, 2X/DAY
     Route: 048
     Dates: start: 2006
  5. PRISTIQ EXTENDED-RELEASE [Suspect]
     Active Substance: DESVENLAFAXINE SUCCINATE
     Indication: ANXIETY
     Dosage: 100 MG, 1X/DAY
     Route: 048
     Dates: start: 201504
  6. VERAPAMIL HCL [Concomitant]
     Active Substance: VERAPAMIL HYDROCHLORIDE
     Dosage: 240 MG, DAILY
     Dates: start: 20150814
  7. PERCOCET [Concomitant]
     Active Substance: ACETAMINOPHEN\OXYCODONE HYDROCHLORIDE
     Indication: BACK PAIN
     Dosage: 20 MG, DAILY (TAKES 2 OF THE 10MG TABS A DAY, 1 IN THE MORNING AND 1 AT BEDTIME)
     Dates: start: 2015
  8. PRISTIQ EXTENDED-RELEASE [Suspect]
     Active Substance: DESVENLAFAXINE SUCCINATE
     Indication: PANIC ATTACK
  9. KLONOPIN [Concomitant]
     Active Substance: CLONAZEPAM
     Indication: ANXIETY
     Dosage: 2 MG, 2X/DAY (TAKES 2MG TWICE A DAY WHICH IS ONCE IN THE MORNING AND AT BEDTIME)
     Dates: start: 2008

REACTIONS (2)
  - Drug prescribing error [Unknown]
  - Drug ineffective for unapproved indication [Not Recovered/Not Resolved]

NARRATIVE: CASE EVENT DATE: 20160825
